FAERS Safety Report 6512060-2 (Version None)
Quarter: 2009Q4

REPORT INFORMATION
  Report Type: 
  Country: None (occurrence: None)
  Receive Date: 20091222
  Receipt Date: 20090522
  Transmission Date: 20100525
  Serious: No
  Sender: FDA-Public Use
  Company Number: US-ASTRAZENECA-2009UW13317

PATIENT
  Age: 75 Year
  Sex: Female
  Weight: 68 kg

DRUGS (5)
  1. CRESTOR [Suspect]
     Indication: BLOOD CHOLESTEROL
     Route: 048
     Dates: start: 20090515
  2. PLAVIX [Concomitant]
  3. ASPIRIN [Concomitant]
  4. NEURONTIN [Concomitant]
     Indication: BACK PAIN
  5. PRILOSEC [Concomitant]
     Indication: DYSPEPSIA

REACTIONS (3)
  - ABDOMINAL PAIN UPPER [None]
  - CARDIAC FLUTTER [None]
  - CHEST PAIN [None]
